FAERS Safety Report 7879206-5 (Version None)
Quarter: 2011Q4

REPORT INFORMATION
  Report Type: 
  Country: None (occurrence: None)
  Receive Date: 20111101
  Receipt Date: 20111019
  Transmission Date: 20120403
  Serious: Yes (Hospitalization)
  Sender: FDA-Public Use
  Company Number: US-BAYER-2011-026272

PATIENT
  Age: 48 Year
  Sex: Female

DRUGS (7)
  1. YASMIN [Suspect]
     Dosage: UNK
     Route: 048
     Dates: start: 20070301, end: 20080501
  2. PRILOSEC [Concomitant]
  3. YASMIN [Suspect]
     Indication: CONTRACEPTION
     Dosage: UNK
     Route: 048
     Dates: start: 20010701, end: 20040301
  4. YASMIN [Suspect]
     Dosage: UNK
     Route: 048
     Dates: start: 20041201, end: 20060201
  5. TYLENOL PM [Concomitant]
  6. IBUPROFEN [Concomitant]
  7. MICARDIS HCT [Concomitant]

REACTIONS (7)
  - ANXIETY [None]
  - DEEP VEIN THROMBOSIS [None]
  - INJURY [None]
  - POST THROMBOTIC SYNDROME [None]
  - PAIN [None]
  - PULMONARY EMBOLISM [None]
  - EMOTIONAL DISTRESS [None]
